FAERS Safety Report 16087842 (Version 2)
Quarter: 2019Q1

REPORT INFORMATION
  Report Type: Report from Study
  Country: IT (occurrence: IT)
  Receive Date: 20190319
  Receipt Date: 20190327
  Transmission Date: 20190418
  Serious: Yes (Other)
  Sender: FDA-Public Use
  Company Number: IT-ACCORD-114067

PATIENT
  Age: 71 Year
  Sex: Male

DRUGS (4)
  1. PACLITAXEL/PACLITAXEL LIPOSOME [Suspect]
     Active Substance: PACLITAXEL
     Indication: OESOPHAGEAL ADENOCARCINOMA
     Dosage: STRENGTH: 6 MG / ML, CONCENTRATE FOR SOLUTION
     Route: 041
     Dates: start: 20180801, end: 20181029
  2. NORVASC [Concomitant]
     Active Substance: AMLODIPINE BESYLATE
     Dosage: STRENGTH: 5 MG
     Route: 048
  3. LASIX [Concomitant]
     Active Substance: FUROSEMIDE
     Dosage: STRENGTH: 25 MG
     Route: 048
  4. CARDIOASPIRIN [Concomitant]
     Active Substance: ASPIRIN
     Dosage: STRENGTH: 100 MG
     Route: 048

REACTIONS (3)
  - Facial paralysis [Recovering/Resolving]
  - Facial paralysis [None]
  - Off label use [Unknown]

NARRATIVE: CASE EVENT DATE: 20181021
